FAERS Safety Report 16275930 (Version 3)
Quarter: 2020Q1

REPORT INFORMATION
  Report Type: Spontaneous
  Country: US (occurrence: US)
  Receive Date: 20190506
  Receipt Date: 20200325
  Transmission Date: 20200409
  Serious: No
  Sender: FDA-Public Use
  Company Number: US-SA-2019SA040913

PATIENT
  Age: 64 Year
  Sex: Female

DRUGS (1)
  1. KEVZARA [Suspect]
     Active Substance: SARILUMAB
     Indication: PRODUCT USED FOR UNKNOWN INDICATION
     Dosage: 150 MG, QOW
     Route: 058
     Dates: start: 201711

REACTIONS (6)
  - Arthralgia [Unknown]
  - Skin papilloma [Unknown]
  - Arthropod bite [Unknown]
  - Cough [Unknown]
  - Pain in extremity [Unknown]
  - Knee operation [Unknown]

NARRATIVE: CASE EVENT DATE: 2018
